FAERS Safety Report 9254258 (Version 2)
Quarter: 2013Q2

REPORT INFORMATION
  Report Type: Report from Study
  Country: AU (occurrence: AU)
  Receive Date: 20130425
  Receipt Date: 20130425
  Transmission Date: 20140414
  Serious: Yes (Other)
  Sender: FDA-Public Use
  Company Number: PHHY2013AU027569

PATIENT
  Age: 88 Year
  Sex: Female

DRUGS (18)
  1. ACLASTA [Suspect]
     Dosage: 5 MG, UNK
     Route: 042
     Dates: start: 20110112
  2. ACLASTA [Suspect]
     Dosage: 5 MG, UNK
     Route: 042
     Dates: start: 20120130
  3. ACLASTA [Suspect]
     Dosage: 5 MG, UNK
     Route: 042
     Dates: start: 20130319
  4. METOPROLOL TARTRATE SANDOZ [Suspect]
     Dosage: 50 MG, (HALF TABLET DAILY)
  5. ASTRIX 100 [Concomitant]
     Dosage: 100 MG, DAILY WITH MEALS
  6. CALTRATE [Concomitant]
     Dosage: 600 MG, (DAILY)
  7. ELOCON [Concomitant]
     Dosage: UNK (DAILY)
  8. ESCITALOPRAM [Concomitant]
     Dosage: 10 MG, (DAILY)
  9. PANADOL OSTEO [Concomitant]
     Dosage: 665 MG, (2 THREE TIMES A DAY)
  10. PERINDOPRIL [Concomitant]
     Dosage: 8 MG, (1 DAILY)
  11. PRAVASTATIN [Concomitant]
     Dosage: 10 MG, (1 BEFORE BED)
  12. SEREPAX [Concomitant]
     Dosage: 30 MG, (HALF BEFORE BED PRN)
  13. TARGIN [Concomitant]
     Dosage: 1 DF, BID
  14. TEMAZEPAM [Concomitant]
     Dosage: 10 MG, (1 BEFORE BED)
  15. TRAVATAN [Concomitant]
     Dosage: 40 UG/ML, IN THE EVENING RIGHT SIDE
  16. ZANIDIP [Concomitant]
     Dosage: 20 MG, (1 IN EVENING)
  17. FLUVAX [Concomitant]
     Dosage: UNK
     Dates: start: 20120305
  18. VAXIGRIP [Concomitant]
     Dosage: UNK
     Dates: start: 20130314

REACTIONS (7)
  - Osteoporosis [Unknown]
  - Glaucoma [Unknown]
  - Hypercholesterolaemia [Unknown]
  - Dysphonia [Recovered/Resolved]
  - Insomnia [Unknown]
  - Hypertension [Unknown]
  - Pain [Unknown]
